FAERS Safety Report 22098993 (Version 1)
Quarter: 2023Q1

REPORT INFORMATION
  Report Type: Spontaneous
  Country: US (occurrence: None)
  Receive Date: 20230314
  Receipt Date: 20230314
  Transmission Date: 20230417
  Serious: Yes (Other)
  Sender: FDA-Public Use
  Company Number: None

PATIENT
  Age: 78 Year
  Sex: Male
  Weight: 111.13 kg

DRUGS (4)
  1. ASTEPRO [Suspect]
     Active Substance: AZELASTINE HYDROCHLORIDE
     Indication: Nasal congestion
     Dosage: FREQUENCY : AT BEDTIME;?
     Dates: start: 20230220, end: 20230302
  2. XARELTO [Concomitant]
     Active Substance: RIVAROXABAN
  3. GABAPENTIN [Concomitant]
     Active Substance: GABAPENTIN
  4. PRAZOSIN [Concomitant]
     Active Substance: PRAZOSIN

REACTIONS (1)
  - Heart rate increased [None]

NARRATIVE: CASE EVENT DATE: 20230228
